FAERS Safety Report 7305093-X (Version None)
Quarter: 2011Q1

REPORT INFORMATION
  Report Type: 
  Country: None (occurrence: None)
  Receive Date: 20110222
  Receipt Date: 20110209
  Transmission Date: 20110831
  Serious: Yes (Death)
  Sender: FDA-Public Use
  Company Number: KR-ACTELION-A-CH2011-44902

PATIENT
  Age: 36 Year
  Sex: Female

DRUGS (4)
  1. ATACAND [Concomitant]
  2. ASPIRIN [Concomitant]
  3. TRACLEER [Suspect]
     Indication: PULMONARY ARTERIAL HYPERTENSION
     Dosage: 62.5 MG, BID
     Route: 048
     Dates: start: 20100820, end: 20100920
  4. CRESTOR [Concomitant]

REACTIONS (2)
  - SYSTEMIC LUPUS ERYTHEMATOSUS [None]
  - DRUG INEFFECTIVE [None]
